FAERS Safety Report 8046938-8 (Version None)
Quarter: 2012Q1

REPORT INFORMATION
  Report Type: 
  Country: None (occurrence: None)
  Receive Date: 20120116
  Receipt Date: 20120112
  Transmission Date: 20120608
  Serious: Yes (Other)
  Sender: FDA-Public Use
  Company Number: US-BAYER-2012-004185

PATIENT
  Sex: Female

DRUGS (1)
  1. YAZ [Suspect]
     Indication: CONTRACEPTION
     Dosage: UNK
     Route: 048

REACTIONS (4)
  - VULVOVAGINAL DRYNESS [None]
  - VULVOVAGINAL DISCOMFORT [None]
  - FUNGAL INFECTION [None]
  - VAGINAL INFLAMMATION [None]
